FAERS Safety Report 15007608 (Version 1)
Quarter: 2018Q2

REPORT INFORMATION
  Report Type: Report from Study
  Country: IT (occurrence: IT)
  Receive Date: 20180613
  Receipt Date: 20180613
  Transmission Date: 20180711
  Serious: Yes (Other)
  Sender: FDA-Public Use
  Company Number: IT-MYLANLABS-2018M1039435

PATIENT
  Age: 43 Year
  Sex: Female

DRUGS (4)
  1. AMPICILLIN [Suspect]
     Active Substance: AMPICILLIN
     Indication: PRODUCT USED FOR UNKNOWN INDICATION
     Route: 065
  2. KEFORAL                            /00145501/ [Suspect]
     Active Substance: CEPHALEXIN
     Indication: PRODUCT USED FOR UNKNOWN INDICATION
     Dosage: 2MG/ML IN 0.9% SODIUM CHLORIDE
     Route: 023
  3. KEFORAL                            /00145501/ [Suspect]
     Active Substance: CEPHALEXIN
     Dosage: 20MG/ML IN 0.9% SODIUM CHLORIDE
     Route: 023
  4. PANACEF [Suspect]
     Active Substance: CEFACLOR
     Indication: PRODUCT USED FOR UNKNOWN INDICATION
     Dosage: 2MG/ML IN 0.9% SODIUM CHLORIDE
     Route: 023

REACTIONS (4)
  - Rash maculo-papular [Unknown]
  - Type IV hypersensitivity reaction [Unknown]
  - Therapeutic product cross-reactivity [Unknown]
  - Oedema [Unknown]
